FAERS Safety Report 17347349 (Version 2)
Quarter: 2020Q1

REPORT INFORMATION
  Report Type: Other
  Country: AT (occurrence: AT)
  Receive Date: 20200130
  Receipt Date: 20200323
  Transmission Date: 20200409
  Serious: Yes (Other)
  Sender: FDA-Public Use
  Company Number: AT-CELLTRION INC.-2020AT018001

PATIENT

DRUGS (7)
  1. PERTUZUMAB. [Suspect]
     Active Substance: PERTUZUMAB
     Indication: HER-2 POSITIVE BREAST CANCER
     Dosage: 840 MG/KG
     Route: 042
     Dates: start: 20190115
  2. TAXOTERE [Suspect]
     Active Substance: DOCETAXEL
     Indication: BREAST CANCER
     Dosage: 138.93 MG/KG, 3/WEEK
     Route: 042
     Dates: start: 20190115, end: 20190502
  3. PERTUZUMAB. [Suspect]
     Active Substance: PERTUZUMAB
     Indication: BREAST CANCER
     Dosage: 420 MG/KG, 3/WEEK
     Route: 042
     Dates: start: 20190115
  4. TAXOTERE [Suspect]
     Active Substance: DOCETAXEL
     Indication: HER-2 POSITIVE BREAST CANCER
     Dosage: MOST RECENT DOSE PRIOR TO AE 02/MAY/2019, 138. 93,MG/KG EVERY 3 WEEKS
     Route: 042
     Dates: start: 20190115
  5. NOVALGIN (METAMIZOLE SODIUM) [Concomitant]
     Active Substance: METAMIZOLE SODIUM
     Dosage: ONGOING = CHECKED
     Route: 065
     Dates: start: 20190205
  6. TRASTUZUMAB (UNKNOWN) [Suspect]
     Active Substance: TRASTUZUMAB
     Indication: BREAST CANCER
     Dosage: 616 MG/KG, EVERY 3 WEEKS
     Route: 041
     Dates: start: 20190115
  7. TRASTUZUMAB (UNKNOWN) [Suspect]
     Active Substance: TRASTUZUMAB
     Indication: HER-2 POSITIVE BREAST CANCER
     Dosage: 462 MG/KG, 3/WEEK
     Route: 041
     Dates: start: 20190115

REACTIONS (3)
  - Breast swelling [Recovered/Resolved]
  - Erythema [Recovered/Resolved]
  - Necrosis [Recovered/Resolved]

NARRATIVE: CASE EVENT DATE: 20190715
